FAERS Safety Report 24904299 (Version 3)
Quarter: 2025Q2

REPORT INFORMATION
  Report Type: Report from Study
  Country: US (occurrence: US)
  Receive Date: 20250130
  Receipt Date: 20250630
  Transmission Date: 20250717
  Serious: No
  Sender: SUNOVION
  Company Number: US-SUMITOMO PHARMA SWITZERLAND GMBH-2025SPA000685

PATIENT

DRUGS (8)
  1. ORGOVYX [Suspect]
     Active Substance: RELUGOLIX
     Indication: Prostate cancer
     Dosage: 240 MG, SINGLE
     Route: 048
     Dates: start: 202412, end: 202412
  2. ORGOVYX [Suspect]
     Active Substance: RELUGOLIX
     Dosage: 120 MG, QD
     Route: 048
     Dates: start: 202412
  3. AMLODIPINE [Concomitant]
     Active Substance: AMLODIPINE BESYLATE
     Route: 065
  4. DIETARY SUPPLEMENT [Concomitant]
     Active Substance: DIETARY SUPPLEMENT
     Route: 065
  5. CANNABIDIOL [Concomitant]
     Active Substance: CANNABIDIOL
     Route: 065
  6. LISINOPRIL [Concomitant]
     Active Substance: LISINOPRIL
     Route: 065
  7. PROBIOTICS NOS [Concomitant]
     Active Substance: PROBIOTICS NOS
     Route: 065
  8. HERBALS [Concomitant]
     Active Substance: HERBALS
     Route: 065

REACTIONS (7)
  - Laziness [Unknown]
  - Constipation [Unknown]
  - Fatigue [Unknown]
  - Asthenia [Unknown]
  - Product dose omission issue [Unknown]
  - Product distribution issue [Unknown]
  - Incorrect dosage administered [Unknown]
